FAERS Safety Report 6210649-1 (Version None)
Quarter: 2009Q2

REPORT INFORMATION
  Report Type: 
  Country: None (occurrence: None)
  Receive Date: 20090527
  Receipt Date: 20090520
  Transmission Date: 20091009
  Serious: Yes (Disabling, Other)
  Sender: FDA-Public Use
  Company Number: IPS_01644_2009

PATIENT
  Sex: Female

DRUGS (2)
  1. APOKYN [Suspect]
     Indication: DRUG USE FOR UNKNOWN INDICATION
     Dosage: 0.2 ML TO 0.6 ML
  2. ANTIHYPERTENSIVES [Concomitant]

REACTIONS (8)
  - ABASIA [None]
  - BLOOD PRESSURE INCREASED [None]
  - CONFUSIONAL STATE [None]
  - DELUSION [None]
  - DIZZINESS [None]
  - HALLUCINATION [None]
  - SOMNOLENCE [None]
  - YAWNING [None]
